FAERS Safety Report 21595120 (Version 1)
Quarter: 2022Q4

REPORT INFORMATION
  Report Type: Spontaneous
  Country: FR (occurrence: None)
  Receive Date: 20221115
  Receipt Date: 20221115
  Transmission Date: 20230113
  Serious: Yes (Life-Threatening, Hospitalization)
  Sender: FDA-Public Use
  Company Number: FR-Orion Corporation ORION PHARMA-TREX2022-0199

PATIENT
  Age: 72 Year
  Sex: Female

DRUGS (16)
  1. METHOTREXATE [Interacting]
     Active Substance: METHOTREXATE
     Indication: Crohn^s disease
     Dosage: STRENGTH: 2.5 MG
     Route: 048
     Dates: start: 20211126, end: 202208
  2. METEOSPASMYL [Concomitant]
     Route: 065
     Dates: start: 20220614, end: 20220812
  3. PAROXETINE HYDROCHLORIDE [Concomitant]
     Active Substance: PAROXETINE HYDROCHLORIDE
     Route: 065
     Dates: start: 20220614, end: 20220812
  4. INFLIXIMAB [Concomitant]
     Active Substance: INFLIXIMAB
     Route: 065
     Dates: start: 20211126, end: 20220519
  5. INFLIXIMAB [Concomitant]
     Active Substance: INFLIXIMAB
     Dosage: 10 MG/KG (700 MG)
     Route: 065
     Dates: start: 20220519
  6. LOPERAMIDE HYDROCHLORIDE [Concomitant]
     Active Substance: LOPERAMIDE HYDROCHLORIDE
     Indication: Diarrhoea
     Route: 048
     Dates: start: 20220622, end: 20220629
  7. IBUPROFEN [Concomitant]
     Active Substance: IBUPROFEN
     Indication: Pain
     Route: 048
     Dates: start: 20220801, end: 20220810
  8. CALCIUM\CHOLECALCIFEROL [Concomitant]
     Active Substance: CALCIUM\CHOLECALCIFEROL
     Route: 065
  9. TRAMADOL ALMUS [Concomitant]
     Route: 065
  10. DOLIPRANE [Concomitant]
     Active Substance: ACETAMINOPHEN
     Route: 065
  11. TEMESTA [Concomitant]
     Dosage: STRENGTH: 2.5 MG
     Route: 065
  12. FOLIC ACID [Concomitant]
     Active Substance: FOLIC ACID
     Route: 065
  13. PREDNISOLONE [Concomitant]
     Active Substance: PREDNISOLONE
     Route: 065
     Dates: start: 20220525, end: 20220630
  14. LEUCOVORIN [Concomitant]
     Active Substance: LEUCOVORIN
     Dosage: STRENGTH: 5 MG
     Route: 048
  15. TRAMADOL HYDROCHLORIDE [Concomitant]
     Active Substance: TRAMADOL HYDROCHLORIDE
     Dosage: STRENGTH: 200 MG
     Route: 048
  16. MODULEN IBD NUTRIM [Concomitant]
     Dosage: STRENGTH: 500MG/400 UI
     Route: 048

REACTIONS (4)
  - Febrile bone marrow aplasia [Recovered/Resolved]
  - Toxic epidermal necrolysis [Recovered/Resolved]
  - Drug interaction [Recovered/Resolved]
  - Product use in unapproved indication [Unknown]

NARRATIVE: CASE EVENT DATE: 20220812
